FAERS Safety Report 8303563-9 (Version None)
Quarter: 2012Q2

REPORT INFORMATION
  Report Type: 
  Country: None (occurrence: None)
  Receive Date: 20120423
  Receipt Date: 20120416
  Transmission Date: 20120825
  Serious: Yes (Hospitalization, Other)
  Sender: FDA-Public Use
  Company Number: US-BAYER-2011-098525

PATIENT
  Age: 23 Year
  Sex: Female
  Weight: 81.633 kg

DRUGS (6)
  1. PERCOCET [Concomitant]
  2. CIPROFLOXACIN HCL [Concomitant]
     Indication: URINARY TRACT INFECTION
  3. ZANTAC [Concomitant]
  4. YAZ [Suspect]
     Indication: PREMENSTRUAL SYNDROME
     Dosage: UNK
     Dates: start: 20090529, end: 20090830
  5. IBUPROFEN [Concomitant]
     Dosage: UNK UNK, PRN
  6. SOMA [Concomitant]
     Dosage: UNK
     Dates: start: 20090801, end: 20090901

REACTIONS (7)
  - PANCREATITIS [None]
  - ABDOMINAL PAIN [None]
  - FATIGUE [None]
  - CHOLELITHIASIS [None]
  - GENERAL PHYSICAL HEALTH DETERIORATION [None]
  - CHEST PAIN [None]
  - DYSPNOEA [None]
